FAERS Safety Report 10784549 (Version 1)
Quarter: 2015Q1

REPORT INFORMATION
  Report Type: Spontaneous
  Country: GB (occurrence: GB)
  Receive Date: 20150211
  Receipt Date: 20150211
  Transmission Date: 20150721
  Serious: Yes (Death, Other)
  Sender: FDA-Public Use
  Company Number: GB-SHIRE-GB201500943

PATIENT
  Age: 9 Year
  Sex: Male
  Weight: 26.6 kg

DRUGS (4)
  1. ELVANSE [Suspect]
     Active Substance: LISDEXAMFETAMINE DIMESYLATE
     Indication: ATTENTION DEFICIT/HYPERACTIVITY DISORDER
     Dosage: 70 MG, UNKNOWN
     Route: 048
     Dates: start: 2014
  2. SODIUM VALPROATE [Suspect]
     Active Substance: VALPROATE SODIUM
     Indication: POST-TRAUMATIC EPILEPSY
     Dosage: 200 MG, 2X/DAY:BID
     Route: 048
     Dates: start: 20141108
  3. ELVANSE [Suspect]
     Active Substance: LISDEXAMFETAMINE DIMESYLATE
     Dosage: UNK, UNKNOWN
     Route: 048
     Dates: start: 20141021
  4. MELATONIN [Concomitant]
     Active Substance: MELATONIN
     Indication: PRODUCT USED FOR UNKNOWN INDICATION
     Dosage: UNK, UNKNOWN
     Route: 065

REACTIONS (4)
  - Epidural haemorrhage [Unknown]
  - Sudden death [Fatal]
  - Head injury [Unknown]
  - Post-traumatic epilepsy [Unknown]

NARRATIVE: CASE EVENT DATE: 2014
